FAERS Safety Report 15821429 (Version 1)
Quarter: 2019Q1

REPORT INFORMATION
  Report Type: Spontaneous
  Country: US (occurrence: US)
  Receive Date: 20190113
  Receipt Date: 20190113
  Transmission Date: 20190417
  Serious: Yes (Other)
  Sender: FDA-Public Use
  Company Number: None

PATIENT
  Age: 51 Year
  Sex: Male
  Weight: 81 kg

DRUGS (5)
  1. PROBIOTIC [Concomitant]
     Active Substance: PROBIOTICS NOS
  2. MULTIVITAMINS [Concomitant]
     Active Substance: VITAMINS
  3. VORICONAZOLE 200MG TAB [Suspect]
     Active Substance: VORICONAZOLE
     Indication: FUNGAL INFECTION
     Dosage: ?          QUANTITY:1 TABLET(S);?
     Route: 048
  4. CHOLEST-OFF [Concomitant]
     Active Substance: DIETARY SUPPLEMENT
  5. OMEGA 3 [Concomitant]
     Active Substance: OMEGA-3 FATTY ACIDS

REACTIONS (8)
  - Fatigue [None]
  - Confusional state [None]
  - Asthenia [None]
  - Hallucination [None]
  - Headache [None]
  - Abdominal pain upper [None]
  - Visual impairment [None]
  - Hypophagia [None]

NARRATIVE: CASE EVENT DATE: 20181231
